FAERS Safety Report 4532562-8 (Version None)
Quarter: 2004Q4

REPORT INFORMATION
  Report Type: 
  Country: None (occurrence: None)
  Receive Date: 20041206
  Receipt Date: 20040929
  Transmission Date: 20050328
  Serious: No
  Sender: FDA-Public Use
  Company Number: USA040979680

PATIENT
  Age: 60 Year
  Sex: Female

DRUGS (2)
  1. CYMBALTA [Suspect]
     Indication: DEPRESSION
     Dosage: 60 MG DAY
     Dates: start: 20040827, end: 20040915
  2. PROTONIX [Concomitant]

REACTIONS (7)
  - ABNORMAL BEHAVIOUR [None]
  - AKATHISIA [None]
  - DIZZINESS [None]
  - HALLUCINATION [None]
  - INDIFFERENCE [None]
  - MEMORY IMPAIRMENT [None]
  - PSYCHOTIC DISORDER [None]
